FAERS Safety Report 5894158-5 (Version None)
Quarter: 2008Q3

REPORT INFORMATION
  Report Type: 
  Country: None (occurrence: None)
  Receive Date: 20080923
  Receipt Date: 20080208
  Transmission Date: 20090109
  Serious: No
  Sender: FDA-Public Use
  Company Number: US-ASTRAZENECA-2008UW02772

PATIENT
  Age: 10 Year

DRUGS (2)
  1. SEROQUEL [Suspect]
     Route: 048
  2. DEPAKOTE [Suspect]

REACTIONS (3)
  - AMMONIA INCREASED [None]
  - LIVER FUNCTION TEST ABNORMAL [None]
  - MENTAL STATUS CHANGES [None]
